FAERS Safety Report 4996508-0 (Version None)
Quarter: 2006Q2

REPORT INFORMATION
  Report Type: 
  Country: None (occurrence: None)
  Receive Date: 20060509
  Receipt Date: 20060413
  Transmission Date: 20061013
  Serious: Yes (Hospitalization)
  Sender: FDA-Public Use
  Company Number: PHEH2006US04867

PATIENT
  Age: 25 Year
  Sex: Female
  Weight: 39.2 kg

DRUGS (5)
  1. FOLIC ACID [Concomitant]
     Dosage: 1 MG, QD
  2. LEVOTHYROXINE SODIUM [Concomitant]
     Dosage: 25 NG, QD
  3. ASCORBIC ACID [Concomitant]
     Dosage: 50 MG, QD
  4. KEPPRA [Concomitant]
     Dosage: 500 MG, BID
  5. EXJADE [Suspect]
     Indication: BLOOD IRON INCREASED
     Dosage: 1000 MG, QD
     Route: 048
     Dates: start: 20060301, end: 20060412

REACTIONS (6)
  - BLOOD CREATININE INCREASED [None]
  - BLOOD UREA INCREASED [None]
  - DEHYDRATION [None]
  - PYREXIA [None]
  - RENAL FAILURE ACUTE [None]
  - URINE OUTPUT DECREASED [None]
